FAERS Safety Report 10234044 (Version 1)
Quarter: 2014Q2

REPORT INFORMATION
  Report Type: Spontaneous
  Country: TR (occurrence: TR)
  Receive Date: 20140612
  Receipt Date: 20140612
  Transmission Date: 20141212
  Serious: Yes (Hospitalization, Other)
  Sender: FDA-Public Use
  Company Number: TR-ACTAVIS-2014-12010

PATIENT
  Age: 56 Year
  Sex: Female

DRUGS (1)
  1. PROPYLTHIOURACIL (AELLC) [Suspect]
     Indication: BASEDOW^S DISEASE
     Dosage: UNK
     Route: 065

REACTIONS (1)
  - Cryoglobulinaemia [Recovered/Resolved]
